FAERS Safety Report 12777551 (Version 1)
Quarter: 2016Q3

REPORT INFORMATION
  Report Type: Spontaneous
  Country: US (occurrence: US)
  Receive Date: 20160924
  Receipt Date: 20160924
  Transmission Date: 20161109
  Serious: No
  Sender: FDA-Public Use
  Company Number: US-TEVA-647154USA

PATIENT
  Age: 73 Year
  Sex: Female
  Weight: 70.37 kg

DRUGS (1)
  1. CLONAZEPAM. [Suspect]
     Active Substance: CLONAZEPAM
     Route: 065
     Dates: start: 20160324, end: 20160324

REACTIONS (2)
  - Product substitution issue [Unknown]
  - Nausea [Unknown]

NARRATIVE: CASE EVENT DATE: 2016
